FAERS Safety Report 11176553 (Version 2)
Quarter: 2015Q3

REPORT INFORMATION
  Report Type: Spontaneous
  Country: US (occurrence: None)
  Receive Date: 20150608
  Receipt Date: 20150702
  Transmission Date: 20151125
  Serious: Yes (Death, Other)
  Sender: FDA-Public Use
  Company Number: ADR-2015-01084

PATIENT
  Sex: Female

DRUGS (3)
  1. MORPHINE INTRATHECAL [Suspect]
     Active Substance: MORPHINE
  2. LIORESAL [Suspect]
     Active Substance: BACLOFEN
     Indication: MUSCLE SPASTICITY
  3. CLONIDINE 200MCG/UL [Suspect]
     Active Substance: CLONIDINE

REACTIONS (2)
  - Device breakage [None]
  - Device alarm issue [None]
